FAERS Safety Report 9435253 (Version 1)
Quarter: 2013Q3

REPORT INFORMATION
  Report Type: Report from Study
  Country: US (occurrence: US)
  Receive Date: 20130801
  Receipt Date: 20130801
  Transmission Date: 20140515
  Serious: Yes (Hospitalization)
  Sender: FDA-Public Use
  Company Number: US-ABBOTT-13P-163-1123830-00

PATIENT
  Age: 69 Year
  Sex: Female

DRUGS (6)
  1. HUMIRA [Suspect]
     Indication: RHEUMATOID ARTHRITIS
     Dates: start: 201304
  2. PREDNISONE [Suspect]
     Indication: GOUT
  3. PREDNISONE [Suspect]
     Dates: start: 20130702
  4. UNKNOWN MEDICATIONS [Concomitant]
     Indication: HYPERTENSION
  5. UNKNOWN MEDICATIONS [Concomitant]
     Indication: BLOOD CHOLESTEROL INCREASED
  6. UNKNOWN MEDICATIONS [Concomitant]
     Indication: DIABETES MELLITUS

REACTIONS (3)
  - Mobility decreased [Recovering/Resolving]
  - Diabetes mellitus inadequate control [Recovering/Resolving]
  - Gout [Recovering/Resolving]
